FAERS Safety Report 4987772-2 (Version None)
Quarter: 2006Q2

REPORT INFORMATION
  Report Type: 
  Country: None (occurrence: None)
  Receive Date: 20060424
  Receipt Date: 20060404
  Transmission Date: 20061013
  Serious: Yes (Hospitalization)
  Sender: FDA-Public Use
  Company Number: FR200604000444

PATIENT
  Sex: Female
  Weight: 76 kg

DRUGS (2)
  1. FORTEO [Suspect]
     Dosage: SUBCUTANEOUS
     Route: 058
     Dates: start: 20050301
  2. FORTEO [Concomitant]

REACTIONS (1)
  - THORACIC VERTEBRAL FRACTURE [None]
